FAERS Safety Report 22155541 (Version 1)
Quarter: 2023Q1

REPORT INFORMATION
  Report Type: Spontaneous
  Country: GB (occurrence: GB)
  Receive Date: 20230330
  Receipt Date: 20230330
  Transmission Date: 20230418
  Serious: Yes (Disabling, Other)
  Sender: FDA-Public Use
  Company Number: GB-ORGANON-O2303GBR000665

PATIENT
  Age: 28 Year
  Sex: Male

DRUGS (1)
  1. FINASTERIDE [Suspect]
     Active Substance: FINASTERIDE
     Indication: Alopecia
     Dosage: TOOK FINASTERIDE EVERY DAY
     Route: 048
     Dates: start: 2012, end: 2019

REACTIONS (9)
  - Penile size reduced [Unknown]
  - Dysuria [Unknown]
  - Insomnia [Unknown]
  - Dysarthria [Unknown]
  - Depression [Unknown]
  - Erectile dysfunction [Unknown]
  - Post 5-alpha-reductase inhibitor syndrome [Unknown]
  - Drug ineffective [Unknown]
  - Product use in unapproved indication [Unknown]
